FAERS Safety Report 13616757 (Version 2)
Quarter: 2017Q2

REPORT INFORMATION
  Report Type: Report from Study
  Country: CN (occurrence: CN)
  Receive Date: 20170606
  Receipt Date: 20170620
  Transmission Date: 20170830
  Serious: Yes (Hospitalization)
  Sender: FDA-Public Use
  Company Number: CN-CONCORDIA PHARMACEUTICALS INC.-GSH201706-003349

PATIENT
  Age: 17 Year
  Sex: Male

DRUGS (1)
  1. TRIAMTERENE. [Suspect]
     Active Substance: TRIAMTERENE

REACTIONS (1)
  - Blood creatinine [Recovered/Resolved]
